FAERS Safety Report 8978958 (Version 2)
Quarter: 2013Q1

REPORT INFORMATION
  Report Type: Spontaneous
  Country: US (occurrence: US)
  Receive Date: 20121221
  Receipt Date: 20130305
  Transmission Date: 20140127
  Serious: Yes (Hospitalization, Other)
  Sender: FDA-Public Use
  Company Number: US-BAYER-2012-133418

PATIENT
  Age: 39 Year
  Sex: Female
  Weight: 93.42 kg

DRUGS (1)
  1. MIRENA [Suspect]
     Indication: MENORRHAGIA
     Dosage: 20 MCG/24HR, CONT
     Route: 015
     Dates: start: 20120815, end: 20121211

REACTIONS (4)
  - Post procedural haemorrhage [None]
  - Cyst rupture [None]
  - Abdominal pain lower [None]
  - Device expulsion [None]
